FAERS Safety Report 5371926-X (Version None)
Quarter: 2007Q2

REPORT INFORMATION
  Report Type: 
  Country: None (occurrence: None)
  Receive Date: 20070625
  Receipt Date: 20070608
  Transmission Date: 20071010
  Serious: Yes (Life-Threatening, Hospitalization)
  Sender: FDA-Public Use
  Company Number: DSA_30137_2007

PATIENT
  Age: 62 Year
  Sex: Female

DRUGS (1)
  1. UNI MASDIL (UNI MASDIL) [Suspect]
     Dosage: 200 MG QD ORAL
     Route: 048
     Dates: start: 20070118, end: 20070121

REACTIONS (1)
  - AGRANULOCYTOSIS [None]
